FAERS Safety Report 11159348 (Version 1)
Quarter: 2015Q2

REPORT INFORMATION
  Report Type: Spontaneous
  Country: US (occurrence: US)
  Receive Date: 20150603
  Receipt Date: 20150603
  Transmission Date: 20150821
  Serious: Yes (Hospitalization, Other)
  Sender: FDA-Public Use
  Company Number: US-GLAXOSMITHKLINE INC.-US2015GSK074539

PATIENT
  Age: 54 Year
  Sex: Female

DRUGS (3)
  1. CLINDAMYCIN [Suspect]
     Active Substance: CLINDAMYCIN\CLINDAMYCIN PHOSPHATE
     Indication: CELLULITIS
     Dosage: UNK
  2. LAMOTRIGINE. [Suspect]
     Active Substance: LAMOTRIGINE
     Indication: SEIZURE
  3. LAMOTRIGINE. [Suspect]
     Active Substance: LAMOTRIGINE
     Indication: NEUROFIBROMATOSIS

REACTIONS (14)
  - Blood creatinine increased [Unknown]
  - Drug reaction with eosinophilia and systemic symptoms [Unknown]
  - Face oedema [Unknown]
  - Pyrexia [Recovering/Resolving]
  - Dermatitis exfoliative [Recovered/Resolved]
  - Cutaneous symptom [Recovering/Resolving]
  - Rash morbilliform [Unknown]
  - Cellulitis [Unknown]
  - Eosinophilia [Unknown]
  - Leukocytosis [Unknown]
  - Lung infiltration [Unknown]
  - Hepatic enzyme increased [Unknown]
  - Dyspnoea [Recovering/Resolving]
  - Abdominal pain [Recovering/Resolving]
